FAERS Safety Report 7211654-9 (Version None)
Quarter: 2011Q1

REPORT INFORMATION
  Report Type: 
  Country: None (occurrence: None)
  Receive Date: 20110105
  Receipt Date: 20101223
  Transmission Date: 20110831
  Serious: Yes (Hospitalization)
  Sender: FDA-Public Use
  Company Number: NL-MYLANLABS-2010S1023778

PATIENT
  Age: 28 Year
  Sex: Male

DRUGS (7)
  1. PREDNISONE [Suspect]
     Route: 065
  2. CYCLOSPORINE [Suspect]
     Indication: ACUTE FEBRILE NEUTROPHILIC DERMATOSIS
     Route: 065
  3. PREDNISONE [Suspect]
     Indication: ACUTE FEBRILE NEUTROPHILIC DERMATOSIS
     Route: 065
  4. CYCLOSPORINE [Suspect]
     Route: 065
  5. AZATHIOPRINE [Suspect]
     Indication: ACUTE FEBRILE NEUTROPHILIC DERMATOSIS
     Route: 065
  6. CALCIUM CARBONATE [Concomitant]
     Indication: OSTEOPOROSIS
     Route: 065
  7. ALENDRONIC ACID [Concomitant]
     Indication: OSTEOPOROSIS
     Route: 065

REACTIONS (2)
  - BONE MARROW FAILURE [None]
  - OSTEONECROSIS [None]
